FAERS Safety Report 7162269-2 (Version None)
Quarter: 2010Q4

REPORT INFORMATION
  Report Type: 
  Country: None (occurrence: None)
  Receive Date: 20101215
  Receipt Date: 20091009
  Transmission Date: 20110411
  Serious: Yes (Other)
  Sender: FDA-Public Use
  Company Number: US-PFIZER INC-2009260076

PATIENT
  Sex: Female
  Weight: 43.084 kg

DRUGS (8)
  1. LYRICA [Suspect]
     Indication: PAIN IN EXTREMITY
     Dosage: 300 MG, 1X/DAY
  2. LUNESTA [Concomitant]
     Dosage: UNK
  3. SEROQUEL XR [Concomitant]
     Dosage: UNK
  4. LEXAPRO [Concomitant]
     Dosage: UNK
  5. LAMOTRIGINE [Concomitant]
     Dosage: UNK
  6. PREMARIN [Concomitant]
     Dosage: UNK
  7. NORCO [Concomitant]
     Dosage: UNK
  8. FENTANYL [Concomitant]
     Dosage: UNK

REACTIONS (1)
  - MOOD ALTERED [None]
